FAERS Safety Report 7809280-3 (Version None)
Quarter: 2011Q4

REPORT INFORMATION
  Report Type: 
  Country: None (occurrence: None)
  Receive Date: 20111007
  Receipt Date: 20110919
  Transmission Date: 20120403
  Serious: Yes (Other)
  Sender: FDA-Public Use
  Company Number: US-ACCORD-010827

PATIENT

DRUGS (1)
  1. TACROLIMUS [Suspect]
     Indication: PRODUCT USED FOR UNKNOWN INDICATION

REACTIONS (4)
  - PULMONARY TOXICITY [None]
  - LIPIDS INCREASED [None]
  - GRAFT DYSFUNCTION [None]
  - INTERSTITIAL LUNG DISEASE [None]
